FAERS Safety Report 17097429 (Version 3)
Quarter: 2020Q1

REPORT INFORMATION
  Report Type: Spontaneous
  Country: US (occurrence: US)
  Receive Date: 20191202
  Receipt Date: 20200128
  Transmission Date: 20200409
  Serious: No
  Sender: FDA-Public Use
  Company Number: US-GLAXOSMITHKLINE-US2019210719

PATIENT
  Age: 58 Year
  Sex: Female
  Weight: 58.96 kg

DRUGS (1)
  1. FLONASE [Suspect]
     Active Substance: FLUTICASONE PROPIONATE
     Indication: NASAL CONGESTION
     Dosage: 1 PUFF(S), QD, (ONE PUFF EACH NOSTRIL)
     Route: 045
     Dates: start: 20190918, end: 20191014

REACTIONS (7)
  - Anosmia [Unknown]
  - Nasal inflammation [Unknown]
  - Incorrect dose administered [Unknown]
  - Parosmia [Not Recovered/Not Resolved]
  - Epistaxis [Recovered/Resolved]
  - Dysgeusia [Not Recovered/Not Resolved]
  - Inappropriate schedule of product administration [Unknown]

NARRATIVE: CASE EVENT DATE: 20191011
